FAERS Safety Report 18442300 (Version 2)
Quarter: 2021Q1

REPORT INFORMATION
  Report Type: Spontaneous
  Country: US (occurrence: US)
  Receive Date: 20201029
  Receipt Date: 20210121
  Transmission Date: 20210419
  Serious: Yes (Other)
  Sender: FDA-Public Use
  Company Number: US-GILEAD-2020-0501338

PATIENT
  Age: 44 Year
  Sex: Male

DRUGS (3)
  1. STRIBILD [Suspect]
     Active Substance: COBICISTAT\ELVITEGRAVIR\EMTRICITABINE\TENOFOVIR DISOPROXIL FUMARATE
     Indication: HIV INFECTION
     Dosage: UNK
     Route: 048
     Dates: start: 2004, end: 20201005
  2. TRUVADA [Suspect]
     Active Substance: EMTRICITABINE\TENOFOVIR DISOPROXIL FUMARATE
     Indication: HIV INFECTION
     Dosage: UNK
     Route: 048
     Dates: start: 2004, end: 20060401
  3. ATRIPLA [Suspect]
     Active Substance: EFAVIRENZ\EMTRICITABINE\TENOFOVIR DISOPROXIL FUMARATE
     Indication: HIV INFECTION
     Dosage: UNK
     Route: 048
     Dates: start: 2004, end: 20151201

REACTIONS (11)
  - Multiple fractures [Unknown]
  - Osteonecrosis [Unknown]
  - Osteopenia [Not Recovered/Not Resolved]
  - Emotional distress [Unknown]
  - Humerus fracture [Not Recovered/Not Resolved]
  - Anhedonia [Unknown]
  - Bone loss [Unknown]
  - Anxiety [Unknown]
  - Bone density decreased [Unknown]
  - Tooth loss [Recovered/Resolved]
  - Pain [Unknown]

NARRATIVE: CASE EVENT DATE: 2012
